FAERS Safety Report 4402217-9 (Version None)
Quarter: 2004Q3

REPORT INFORMATION
  Report Type: 
  Country: None (occurrence: None)
  Receive Date: 20040720
  Receipt Date: 20040709
  Transmission Date: 20050211
  Serious: Yes (Other)
  Sender: FDA-Public Use
  Company Number: 200416960GDDC

PATIENT
  Age: 59 Year
  Sex: Female
  Weight: 182 kg

DRUGS (2)
  1. ENOXAPARIN [Suspect]
     Indication: SURGERY
     Route: 058
  2. COUMADIN [Concomitant]
     Dosage: DOSE: UNK

REACTIONS (15)
  - ABDOMINAL COMPARTMENT SYNDROME [None]
  - ACTIVATED PARTIAL THROMBOPLASTIN TIME PROLONGED [None]
  - ANASTOMOTIC HAEMORRHAGE [None]
  - ANTI FACTOR X ANTIBODY POSITIVE [None]
  - BLOOD CREATININE INCREASED [None]
  - CIRCULATORY COLLAPSE [None]
  - HAEMOGLOBIN DECREASED [None]
  - INTERNATIONAL NORMALISED RATIO DECREASED [None]
  - MIOSIS [None]
  - POST PROCEDURAL COMPLICATION [None]
  - POST PROCEDURAL HAEMATOMA [None]
  - PROCEDURAL SITE REACTION [None]
  - PROTHROMBIN TIME PROLONGED [None]
  - SURGICAL PROCEDURE REPEATED [None]
  - WEIGHT DECREASED [None]
